FAERS Safety Report 7412026-4 (Version None)
Quarter: 2011Q2

REPORT INFORMATION
  Report Type: 
  Country: None (occurrence: None)
  Receive Date: 20110405
  Receipt Date: 20110321
  Transmission Date: 20111010
  Serious: Yes (Hospitalization)
  Sender: FDA-Public Use
  Company Number: DSA_45241_2011

PATIENT
  Sex: Female

DRUGS (2)
  1. ENALAPRIL MALEATE [Concomitant]
  2. ENALAPRIL MALEATE [Suspect]
     Indication: HYPERTENSION
     Dosage: DF ORAL
     Route: 048
     Dates: start: 20070101

REACTIONS (4)
  - PARAESTHESIA [None]
  - QUADRIPLEGIA [None]
  - SNAKE BITE [None]
  - ANAPHYLACTIC SHOCK [None]
